FAERS Safety Report 8310450-9 (Version None)
Quarter: 2012Q2

REPORT INFORMATION
  Report Type: 
  Country: None (occurrence: None)
  Receive Date: 20120425
  Receipt Date: 20120416
  Transmission Date: 20120825
  Serious: Yes (Other)
  Sender: FDA-Public Use
  Company Number: US-ASTRAZENECA-2012SE25055

PATIENT
  Age: 38 Year
  Sex: Female

DRUGS (3)
  1. CRESTOR [Suspect]
     Route: 048
  2. COENZYME Q10 [Concomitant]
  3. FISH OIL [Concomitant]

REACTIONS (4)
  - LOW DENSITY LIPOPROTEIN ABNORMAL [None]
  - HIGH DENSITY LIPOPROTEIN DECREASED [None]
  - DRUG INTOLERANCE [None]
  - GAIT DISTURBANCE [None]
